FAERS Safety Report 22100137 (Version 3)
Quarter: 2024Q2

REPORT INFORMATION
  Report Type: Spontaneous
  Country: US (occurrence: US)
  Receive Date: 20230315
  Receipt Date: 20240618
  Transmission Date: 20240715
  Serious: No
  Sender: FDA-Public Use
  Company Number: US-PFIZER INC-PV202300045956

PATIENT
  Age: 60 Year
  Sex: Female

DRUGS (1)
  1. SOMAVERT [Suspect]
     Active Substance: PEGVISOMANT
     Indication: Acromegaly
     Dosage: 30 MG, DAILY
     Route: 058
     Dates: start: 2016

REACTIONS (7)
  - Product dose omission issue [Unknown]
  - Insulin-like growth factor abnormal [Unknown]
  - Urinary tract infection [Unknown]
  - Fatigue [Unknown]
  - Mobility decreased [Unknown]
  - Arthritis [Unknown]
  - Loss of personal independence in daily activities [Unknown]
